FAERS Safety Report 4652095-8 (Version None)
Quarter: 2005Q2

REPORT INFORMATION
  Report Type: 
  Country: None (occurrence: None)
  Receive Date: 20050504
  Receipt Date: 20050330
  Transmission Date: 20051028
  Serious: Yes (Other)
  Sender: FDA-Public Use
  Company Number: 200512619US

PATIENT
  Age: 80 Year
  Sex: Male
  Weight: 91.4 kg

DRUGS (12)
  1. KETEK [Suspect]
     Indication: BRONCHITIS
     Dosage: DOSE: UNK
     Dates: start: 20050221, end: 20050222
  2. KETEK [Suspect]
     Indication: SINUSITIS
     Dosage: DOSE: UNK
     Dates: start: 20050221, end: 20050222
  3. ATIVAN [Suspect]
     Dosage: DOSE: UNK
  4. SINGULAIR [Concomitant]
  5. LIPITOR [Concomitant]
  6. TRICOR [Concomitant]
     Dosage: DOSE: UNK
  7. LANOXIN [Concomitant]
     Dosage: DOSE: UNK
  8. ALLOPURINOL [Concomitant]
     Dosage: DOSE: UNK
  9. COUMADIN [Concomitant]
     Dosage: DOSE: UNK
  10. EFFEXOR [Concomitant]
     Dosage: DOSE: UNK
  11. TOPROL-XL [Concomitant]
     Dosage: DOSE: UNK
  12. UNKNOWN DRUG [Concomitant]
     Dosage: DOSE: UNK

REACTIONS (4)
  - CEREBROVASCULAR ACCIDENT [None]
  - CONFUSIONAL STATE [None]
  - DRUG INTERACTION [None]
  - OVERDOSE [None]
